FAERS Safety Report 9111087 (Version 1)
Quarter: 2013Q1

REPORT INFORMATION
  Report Type: Spontaneous
  Country: US (occurrence: US)
  Receive Date: 20130219
  Receipt Date: 20130219
  Transmission Date: 20140127
  Serious: Yes (Hospitalization, Other)
  Sender: FDA-Public Use
  Company Number: US-BRISTOL-MYERS SQUIBB COMPANY-16731036

PATIENT
  Age: 44 Year
  Sex: Female
  Weight: 81.63 kg

DRUGS (1)
  1. ORENCIA FOR INJ [Suspect]
     Indication: RHEUMATOID ARTHRITIS
     Dosage: LAST INFUSION ON 31MAY2012
     Route: 042
     Dates: start: 200811

REACTIONS (4)
  - Cellulitis [Unknown]
  - Pneumonia [Unknown]
  - Bronchitis [Unknown]
  - Influenza [Unknown]
